FAERS Safety Report 24575919 (Version 1)
Quarter: 2024Q4

REPORT INFORMATION
  Report Type: Spontaneous
  Country: US (occurrence: None)
  Receive Date: 20241101
  Receipt Date: 20241101
  Transmission Date: 20250114
  Serious: Yes (Death, Life-Threatening, Hospitalization)
  Sender: Public
  Company Number: None

PATIENT
  Age: 54 Year
  Sex: Female
  Weight: 66 kg

DRUGS (1)
  1. PACLITAXEL [Suspect]
     Active Substance: PACLITAXEL
     Indication: Breast cancer metastatic
     Route: 042
     Dates: start: 20240930, end: 20240930

REACTIONS (6)
  - Pulmonary oedema [None]
  - Anaphylactic reaction [None]
  - Renal failure [None]
  - Hepatic failure [None]
  - Metabolic acidosis [None]
  - Hyperkalaemia [None]

NARRATIVE: CASE EVENT DATE: 20240930
